FAERS Safety Report 24764656 (Version 1)
Quarter: 2024Q4

REPORT INFORMATION
  Report Type: Spontaneous
  Country: LB (occurrence: LB)
  Receive Date: 20241223
  Receipt Date: 20241223
  Transmission Date: 20250115
  Serious: Yes (Other)
  Sender: EPIC PHARM
  Company Number: LB-EPICPHARMA-LB-2024EPCLIT01586

PATIENT
  Age: 29 Year
  Sex: Male

DRUGS (2)
  1. PAROXETINE HYDROCHLORIDE [Suspect]
     Active Substance: PAROXETINE HYDROCHLORIDE
     Indication: Generalised anxiety disorder
     Dosage: THERAPY TWO YEARS PREVIOUSLY FOR SIX MONTHS DURATION
     Route: 065
  2. PAROXETINE HYDROCHLORIDE [Suspect]
     Active Substance: PAROXETINE HYDROCHLORIDE
     Route: 065

REACTIONS (2)
  - Mucosal prolapse syndrome [Recovered/Resolved]
  - Product use in unapproved indication [Unknown]
